FAERS Safety Report 12843744 (Version 3)
Quarter: 2016Q4

REPORT INFORMATION
  Report Type: Spontaneous
  Country: US (occurrence: US)
  Receive Date: 20161013
  Receipt Date: 20161130
  Transmission Date: 20170207
  Serious: Yes (Life-Threatening, Hospitalization)
  Sender: FDA-Public Use
  Company Number: US-JNJFOC-20161004157

PATIENT
  Age: 59 Year
  Sex: Male

DRUGS (1)
  1. XARELTO [Suspect]
     Active Substance: RIVAROXABAN
     Indication: PRODUCT USED FOR UNKNOWN INDICATION
     Route: 048
     Dates: end: 20160828

REACTIONS (5)
  - Cerebral haemorrhage [Unknown]
  - Dyspnoea [Unknown]
  - Abnormal loss of weight [Unknown]
  - Seizure [Unknown]
  - Haematochezia [Unknown]

NARRATIVE: CASE EVENT DATE: 2016
